FAERS Safety Report 9994886 (Version 1)
Quarter: 2014Q1

REPORT INFORMATION
  Report Type: Spontaneous
  Country: GB (occurrence: None)
  Receive Date: 20140306
  Receipt Date: 20140306
  Transmission Date: 20141002
  Serious: Yes (Other)
  Sender: FDA-Public Use
  Company Number: AUR-APL-2014-02185

PATIENT
  Age: 66 Year
  Sex: Male
  Weight: 115 kg

DRUGS (6)
  1. BISOPROLOL [Suspect]
     Indication: PRODUCT USED FOR UNKNOWN INDICATION
     Route: 048
     Dates: start: 20140123, end: 20140213
  2. DUTASTERIDE [Concomitant]
  3. LISINOPRIL [Concomitant]
  4. SILDENAFIL [Concomitant]
  5. SIMVASTATIN [Concomitant]
  6. TAMSULOSIN HYDROCHLORIDE [Concomitant]

REACTIONS (1)
  - Muscular weakness [None]
